FAERS Safety Report 18474055 (Version 1)
Quarter: 2020Q4

REPORT INFORMATION
  Report Type: Spontaneous
  Country: PT (occurrence: PT)
  Receive Date: 20201106
  Receipt Date: 20201106
  Transmission Date: 20210114
  Serious: Yes (Other)
  Sender: FDA-Public Use
  Company Number: PT-009507513-2011PRT000682

PATIENT
  Age: 22 Year
  Sex: Female
  Weight: 57 kg

DRUGS (1)
  1. IMPLANON NXT [Suspect]
     Active Substance: ETONOGESTREL
     Indication: CONTRACEPTION
     Dosage: CONTRACEPTION
     Route: 058
     Dates: start: 20170208, end: 20201023

REACTIONS (2)
  - Incorrect product administration duration [Recovering/Resolving]
  - Menstruation irregular [Recovering/Resolving]

NARRATIVE: CASE EVENT DATE: 20170208
